FAERS Safety Report 10544194 (Version 4)
Quarter: 2015Q1

REPORT INFORMATION
  Report Type: Spontaneous
  Country: BR (occurrence: BR)
  Receive Date: 20141027
  Receipt Date: 20150324
  Transmission Date: 20150720
  Serious: Yes (Other)
  Sender: FDA-Public Use
  Company Number: PHHY2014BR136793

PATIENT
  Age: 22 Year
  Sex: Female
  Weight: 42 kg

DRUGS (2)
  1. CYMBALTA [Concomitant]
     Active Substance: DULOXETINE HYDROCHLORIDE
     Indication: PRODUCT USED FOR UNKNOWN INDICATION
     Dosage: UNK
     Route: 065
  2. LECTRUM [Suspect]
     Active Substance: LEUPROLIDE ACETATE
     Indication: ENDOMETRIOSIS
     Dosage: 1 DF, (1 AMPOULE EVERY 3 MONTHS)
     Route: 065
     Dates: start: 20140417

REACTIONS (17)
  - Bipolar disorder [Recovering/Resolving]
  - Nervous system disorder [Unknown]
  - Menstrual disorder [Not Recovered/Not Resolved]
  - Personality change [Recovering/Resolving]
  - Affect lability [Recovering/Resolving]
  - Libido increased [Recovering/Resolving]
  - Impulsive behaviour [Recovering/Resolving]
  - Weight decreased [Unknown]
  - Asocial behaviour [Recovering/Resolving]
  - Personality disorder [Recovering/Resolving]
  - Anger [Recovering/Resolving]
  - Agitation [Recovering/Resolving]
  - Acne [Unknown]
  - Abdominal pain [Not Recovered/Not Resolved]
  - Abnormal behaviour [Recovering/Resolving]
  - Confusional state [Recovering/Resolving]
  - Body temperature increased [Unknown]
